FAERS Safety Report 7374774-4 (Version None)
Quarter: 2011Q1

REPORT INFORMATION
  Report Type: 
  Country: None (occurrence: None)
  Receive Date: 20110325
  Receipt Date: 20101029
  Transmission Date: 20110831
  Serious: No
  Sender: FDA-Public Use
  Company Number: US-MYLANLABS-2010S1019942

PATIENT
  Age: 41 Year
  Sex: Female

DRUGS (5)
  1. NORCO [Concomitant]
     Indication: BREAKTHROUGH PAIN
     Dosage: 10MG/325MG
     Route: 048
  2. FENTANYL-100 [Suspect]
     Indication: RHEUMATOID ARTHRITIS
     Dosage: Q72H
     Route: 062
  3. METHADONE [Concomitant]
     Indication: RHEUMATOID ARTHRITIS
     Route: 048
  4. LYRICA [Concomitant]
     Indication: RHEUMATOID ARTHRITIS
     Route: 048
     Dates: start: 20101028
  5. ARAVA [Concomitant]
     Indication: INFLAMMATION
     Route: 048

REACTIONS (1)
  - FEELING ABNORMAL [None]
